FAERS Safety Report 10649606 (Version 1)
Quarter: 2014Q4

REPORT INFORMATION
  Report Type: Spontaneous
  Country: US (occurrence: None)
  Receive Date: 20141205
  Receipt Date: 20141205
  Transmission Date: 20150529
  Serious: No
  Sender: FDA-Public Use
  Company Number: USA-2014094977

PATIENT
  Age: 76 Year
  Sex: Male

DRUGS (1)
  1. POMALYST [Suspect]
     Active Substance: POMALIDOMIDE
     Indication: AMYLOIDOSIS
     Dosage: 1 MG, 7  IN 14 D, PO
     Route: 048
     Dates: start: 20140218, end: 20140911

REACTIONS (4)
  - Gait disturbance [None]
  - Thinking abnormal [None]
  - Full blood count decreased [None]
  - Feeling abnormal [None]

NARRATIVE: CASE EVENT DATE: 2014
